FAERS Safety Report 7085828-4 (Version None)
Quarter: 2010Q4

REPORT INFORMATION
  Report Type: 
  Country: None (occurrence: None)
  Receive Date: 20101105
  Receipt Date: 20101026
  Transmission Date: 20110411
  Serious: Yes (Death, Other)
  Sender: FDA-Public Use
  Company Number: GR-ROCHE-736529

PATIENT
  Age: 76 Year
  Sex: Male

DRUGS (5)
  1. BEVACIZUMAB [Suspect]
     Indication: COLORECTAL CANCER
     Route: 058
     Dates: end: 20080501
  2. CAPECITABINE [Suspect]
     Indication: COLORECTAL CANCER
     Route: 065
  3. OXALIPLATIN [Suspect]
     Indication: COLORECTAL CANCER
     Dosage: WITHDRAWN AFTER 3 CYCLE
     Route: 065
     Dates: start: 20071115, end: 20080815
  4. IRINOTECAN HCL [Suspect]
     Indication: COLORECTAL CANCER
     Route: 065
  5. VECTIBIX [Suspect]
     Indication: COLORECTAL CANCER
     Dosage: SIXTEEN CYCLE
     Route: 041
     Dates: start: 20080801, end: 20090401

REACTIONS (3)
  - DEATH [None]
  - DERMATITIS ACNEIFORM [None]
  - DIARRHOEA [None]
